FAERS Safety Report 8041865-4 (Version None)
Quarter: 2012Q1

REPORT INFORMATION
  Report Type: 
  Country: None (occurrence: None)
  Receive Date: 20120112
  Receipt Date: 20120112
  Transmission Date: 20120608
  Serious: Yes (Life-Threatening, Hospitalization, Other)
  Sender: FDA-Public Use
  Company Number: None

PATIENT
  Age: 58 Year
  Sex: Female
  Weight: 61.234 kg

DRUGS (1)
  1. CYMBALTA [Suspect]
     Indication: FIBROMYALGIA
     Dosage: 1 TAB
     Route: 048
     Dates: start: 20110501, end: 20110701

REACTIONS (18)
  - FAECES DISCOLOURED [None]
  - CARDIAC DISORDER [None]
  - SYNCOPE [None]
  - MANIA [None]
  - CONDITION AGGRAVATED [None]
  - GASTROINTESTINAL DISORDER [None]
  - VOMITING [None]
  - TINNITUS [None]
  - MUSCLE TIGHTNESS [None]
  - HEART RATE INCREASED [None]
  - SUICIDAL IDEATION [None]
  - DIARRHOEA [None]
  - PAIN [None]
  - SKIN HAEMORRHAGE [None]
  - INSOMNIA [None]
  - VISION BLURRED [None]
  - GASTROINTESTINAL PAIN [None]
  - HYPERHIDROSIS [None]
